FAERS Safety Report 23162562 (Version 11)
Quarter: 2025Q2

REPORT INFORMATION
  Report Type: Report from Study
  Country: CA (occurrence: CA)
  Receive Date: 20231109
  Receipt Date: 20250408
  Transmission Date: 20250717
  Serious: Yes (Hospitalization, Other)
  Sender: TAKEDA
  Company Number: CA-TAKEDA-2023TUS041567

PATIENT
  Sex: Male

DRUGS (22)
  1. VEDOLIZUMAB [Suspect]
     Active Substance: VEDOLIZUMAB
     Indication: Crohn^s disease
  2. VEDOLIZUMAB [Suspect]
     Active Substance: VEDOLIZUMAB
     Indication: Crohn^s disease
     Dosage: 108 MILLIGRAM, Q2WEEKS
     Dates: start: 20221031
  3. STELARA [Concomitant]
     Active Substance: USTEKINUMAB
  4. PREDNISONE [Concomitant]
     Active Substance: PREDNISONE
     Indication: Pain
  5. IMODIUM [Concomitant]
     Active Substance: LOPERAMIDE HYDROCHLORIDE
  6. FLOMAX [Concomitant]
     Active Substance: TAMSULOSIN HYDROCHLORIDE
  7. Claritin extra [Concomitant]
  8. VITAMIN B12 [Concomitant]
     Active Substance: CYANOCOBALAMIN
  9. REMICADE [Concomitant]
     Active Substance: INFLIXIMAB
  10. PENTASA [Concomitant]
     Active Substance: MESALAMINE
  11. CICLESONIDE [Concomitant]
     Active Substance: CICLESONIDE
  12. FERROUS FUMARATE [Concomitant]
     Active Substance: FERROUS FUMARATE
  13. VITAMIN D3 [Concomitant]
     Active Substance: CHOLECALCIFEROL
  14. HERBALS\SAW PALMETTO [Concomitant]
     Active Substance: HERBALS\SAW PALMETTO
  15. GLUCOSAMINE [Concomitant]
     Active Substance: GLUCOSAMINE
  16. RANITIDINE [Concomitant]
     Active Substance: RANITIDINE
  17. TRAMADOL [Concomitant]
     Active Substance: TRAMADOL
  18. Dom-loperamide [Concomitant]
  19. VALSARTAN [Concomitant]
     Active Substance: VALSARTAN
  20. TAMSULOSIN [Concomitant]
     Active Substance: TAMSULOSIN
  21. AMLODIPINE [Concomitant]
     Active Substance: AMLODIPINE BESYLATE
  22. RABEPRAZOLE [Concomitant]
     Active Substance: RABEPRAZOLE

REACTIONS (18)
  - Gallbladder disorder [Unknown]
  - Crohn^s disease [Not Recovered/Not Resolved]
  - Liver injury [Unknown]
  - Faeces pale [Unknown]
  - Ocular icterus [Unknown]
  - Malaise [Unknown]
  - Jaundice [Unknown]
  - Weight decreased [Unknown]
  - Blood test abnormal [Unknown]
  - Pancreatic disorder [Unknown]
  - Faeces soft [Unknown]
  - Diarrhoea [Unknown]
  - Bile acid malabsorption [Unknown]
  - Serum ferritin decreased [Recovering/Resolving]
  - Diverticulum intestinal [Unknown]
  - Haemorrhoids [Unknown]
  - Anal fissure [Unknown]
  - Arthralgia [Unknown]
